FAERS Safety Report 21067028 (Version 1)
Quarter: 2022Q3

REPORT INFORMATION
  Report Type: Report from Study
  Country: US (occurrence: US)
  Receive Date: 20220712
  Receipt Date: 20220712
  Transmission Date: 20221027
  Serious: Yes (Other)
  Sender: FDA-Public Use
  Company Number: US-SUN PHARMACEUTICAL INDUSTRIES LTD-2022R1-343712

PATIENT
  Sex: Male
  Weight: 3.895 kg

DRUGS (3)
  1. SOTALOL [Suspect]
     Active Substance: SOTALOL
     Indication: Atrial flutter
     Dosage: 80 MILLIGRAM, DAILY
     Route: 064
  2. SOTALOL [Suspect]
     Active Substance: SOTALOL
     Dosage: 20 MILLIGRAM, DAILY
     Route: 064
  3. OSELTAMIVIR [Suspect]
     Active Substance: OSELTAMIVIR
     Indication: Antiviral treatment
     Route: 064

REACTIONS (2)
  - Ventricular tachycardia [Unknown]
  - Foetal exposure during pregnancy [Unknown]
